FAERS Safety Report 5638458-2 (Version None)
Quarter: 2008Q1

REPORT INFORMATION
  Report Type: 
  Country: None (occurrence: None)
  Receive Date: 20080221
  Receipt Date: 20080221
  Transmission Date: 20080703
  Serious: No
  Sender: FDA-Public Use
  Company Number: None

PATIENT
  Age: 42 Year
  Sex: Female
  Weight: 53.0709 kg

DRUGS (1)
  1. TRAMADOL HCL [Suspect]
     Indication: BACK PAIN

REACTIONS (11)
  - COLD SWEAT [None]
  - DISTURBANCE IN ATTENTION [None]
  - DRUG WITHDRAWAL SYNDROME [None]
  - HALLUCINATION [None]
  - HOT FLUSH [None]
  - INSOMNIA [None]
  - MYALGIA [None]
  - NAUSEA [None]
  - PAIN [None]
  - TACHYPNOEA [None]
  - TREATMENT NONCOMPLIANCE [None]
